FAERS Safety Report 9452761 (Version 1)
Quarter: 2013Q3

REPORT INFORMATION
  Report Type: Report from Study
  Country: AR (occurrence: AR)
  Receive Date: 20130812
  Receipt Date: 20130812
  Transmission Date: 20140515
  Serious: Yes (Hospitalization)
  Sender: FDA-Public Use
  Company Number: PHHY2013AR085748

PATIENT
  Sex: Male

DRUGS (1)
  1. EXFORGE [Suspect]
     Indication: BLOOD PRESSURE ABNORMAL
     Dosage: 1 DF (320/10MG), A DAY
     Route: 048

REACTIONS (2)
  - Urethral disorder [Recovering/Resolving]
  - Dysuria [Recovering/Resolving]
